FAERS Safety Report 10553088 (Version 2)
Quarter: 2014Q4

REPORT INFORMATION
  Report Type: Spontaneous
  Country: US (occurrence: US)
  Receive Date: 20141030
  Receipt Date: 20141030
  Transmission Date: 20150529
  Serious: Yes (Death, Other)
  Sender: FDA-Public Use
  Company Number: US-ROCHE-920200106001

PATIENT
  Age: 24 Year
  Sex: Female

DRUGS (2)
  1. ROFERON-A [Suspect]
     Active Substance: INTERFERON ALFA-2A
     Indication: CHRONIC MYELOID LEUKAEMIA
     Dosage: DAILY DOSE=5X10^6 U/M2
     Route: 030
     Dates: start: 19850617, end: 19850820
  2. ROFERON-A [Suspect]
     Active Substance: INTERFERON ALFA-2A
     Route: 030
     Dates: start: 19851028, end: 19860221

REACTIONS (5)
  - Fungal infection [Fatal]
  - Thrombocytopenia [Recovering/Resolving]
  - Neutropenia [Recovering/Resolving]
  - Bone marrow failure [Not Recovered/Not Resolved]
  - Bone marrow failure [Unknown]
